FAERS Safety Report 12843612 (Version 1)
Quarter: 2016Q4

REPORT INFORMATION
  Report Type: Spontaneous
  Country: US (occurrence: US)
  Receive Date: 20161013
  Receipt Date: 20161013
  Transmission Date: 20170207
  Serious: No
  Sender: FDA-Public Use
  Company Number: None

PATIENT
  Age: 62 Year
  Sex: Female
  Weight: 85.81 kg

DRUGS (4)
  1. PAXIL [Concomitant]
     Active Substance: PAROXETINE HYDROCHLORIDE
  2. HYOSCYAMINE SULFATE ORALLY DISINTEGRATING TABLETS 0.125MG [Suspect]
     Active Substance: HYOSCYAMINE SULFATE
     Indication: ULCER
     Dosage: 0.125MG (AS NEEDED) OR 4XDAY 1 PILL UNDER TOUNG
     Route: 060
     Dates: start: 20160107
  3. XANAX [Concomitant]
     Active Substance: ALPRAZOLAM
  4. RESTORIL [Concomitant]
     Active Substance: TEMAZEPAM

REACTIONS (6)
  - Dizziness [None]
  - Vision blurred [None]
  - Somnolence [None]
  - Fall [None]
  - Impaired driving ability [None]
  - Dry mouth [None]

NARRATIVE: CASE EVENT DATE: 20160713
